FAERS Safety Report 10616904 (Version 4)
Quarter: 2015Q1

REPORT INFORMATION
  Report Type: Spontaneous
  Country: US (occurrence: US)
  Receive Date: 20141201
  Receipt Date: 20150312
  Transmission Date: 20150720
  Serious: No
  Sender: FDA-Public Use
  Company Number: US-GLAXOSMITHKLINE-US2014GSK025252

PATIENT
  Sex: Female

DRUGS (2)
  1. DYAZIDE [Suspect]
     Active Substance: HYDROCHLOROTHIAZIDE\TRIAMTERENE
     Dosage: UNK
     Route: 065
  2. DYAZIDE [Suspect]
     Active Substance: HYDROCHLOROTHIAZIDE\TRIAMTERENE
     Indication: HYPERTENSION
     Dosage: UNK UNK, U
     Route: 048

REACTIONS (3)
  - Therapeutic response decreased [Recovered/Resolved]
  - Drug ineffective [Unknown]
  - Product quality issue [Unknown]
